FAERS Safety Report 18290450 (Version 1)
Quarter: 2020Q3

REPORT INFORMATION
  Report Type: Report from Study
  Country: US (occurrence: US)
  Receive Date: 20200921
  Receipt Date: 20200921
  Transmission Date: 20201103
  Serious: Yes (Other)
  Sender: FDA-Public Use
  Company Number: NVSC2020US252562

PATIENT
  Sex: Female

DRUGS (1)
  1. GLEEVEC [Suspect]
     Active Substance: IMATINIB MESYLATE
     Indication: MYELOID LEUKAEMIA
     Dosage: EXPOSURE VIA PARTNER: 400 MG, BID
     Route: 050

REACTIONS (2)
  - Paternal exposure timing unspecified [Unknown]
  - Abortion spontaneous [Unknown]
